FAERS Safety Report 23995799 (Version 1)
Quarter: 2024Q2

REPORT INFORMATION
  Report Type: Spontaneous
  Country: US (occurrence: None)
  Receive Date: 20240619
  Receipt Date: 20240619
  Transmission Date: 20240716
  Serious: Yes (Other)
  Sender: FDA-Public Use
  Company Number: None

PATIENT
  Age: 8 Year
  Sex: Male
  Weight: 25.7 kg

DRUGS (1)
  1. TRIKAFTA [Suspect]
     Active Substance: ELEXACAFTOR\IVACAFTOR\TEZACAFTOR
     Indication: Cystic fibrosis
     Dosage: TWICE  A DAY ORAL
     Route: 048
     Dates: start: 20220225

REACTIONS (4)
  - Abnormal behaviour [None]
  - Anger [None]
  - Anger [None]
  - Aggression [None]

NARRATIVE: CASE EVENT DATE: 20230306
